FAERS Safety Report 17610908 (Version 1)
Quarter: 2020Q2

REPORT INFORMATION
  Report Type: Spontaneous
  Country: US (occurrence: US)
  Receive Date: 20200401
  Receipt Date: 20200401
  Transmission Date: 20200713
  Serious: No
  Sender: FDA-Public Use
  Company Number: None

PATIENT
  Age: 56 Year
  Sex: Female
  Weight: 75.6 kg

DRUGS (3)
  1. ONDANSETRON [Concomitant]
     Active Substance: ONDANSETRON
  2. MULTIHANCE [Suspect]
     Active Substance: GADOBENATE DIMEGLUMINE
     Indication: MAGNETIC RESONANCE IMAGING
     Dates: start: 20200331, end: 20200331
  3. BUTALBITAL/CAFFEINE/ACETAMINOPHEN [Concomitant]

REACTIONS (8)
  - Abdominal discomfort [None]
  - Hot flush [None]
  - Decreased appetite [None]
  - Migraine [None]
  - Pyrexia [None]
  - Injection site pain [None]
  - Vertigo [None]
  - Nausea [None]

NARRATIVE: CASE EVENT DATE: 20200331
